FAERS Safety Report 20737583 (Version 3)
Quarter: 2022Q2

REPORT INFORMATION
  Report Type: Report from Study
  Country: AR (occurrence: AR)
  Receive Date: 20220422
  Receipt Date: 20220519
  Transmission Date: 20220720
  Serious: Yes (Other)
  Sender: FDA-Public Use
  Company Number: AR-BRISTOL-MYERS SQUIBB COMPANY-2022-024992

PATIENT
  Age: 76 Year
  Sex: Female

DRUGS (2)
  1. ELIQUIS [Suspect]
     Active Substance: APIXABAN
     Indication: Cerebrovascular accident prophylaxis
     Route: 065
     Dates: start: 20181128, end: 20220418
  2. ELIQUIS [Suspect]
     Active Substance: APIXABAN
     Route: 065
     Dates: start: 202204

REACTIONS (1)
  - Cataract [Recovered/Resolved]
